FAERS Safety Report 23580858 (Version 1)
Quarter: 2024Q1

REPORT INFORMATION
  Report Type: Spontaneous
  Country: CN (occurrence: CN)
  Receive Date: 20240229
  Receipt Date: 20240229
  Transmission Date: 20240409
  Serious: Yes (Hospitalization)
  Sender: FDA-Public Use
  Company Number: CN-BAYER-2024A031531

PATIENT
  Age: 87 Year
  Sex: Female
  Weight: 60 kg

DRUGS (2)
  1. AVELOX [Suspect]
     Active Substance: MOXIFLOXACIN HYDROCHLORIDE
     Indication: Pneumonia
     Dosage: 0.4 G, QD
     Route: 048
     Dates: start: 20240104, end: 20240106
  2. AVELOX [Suspect]
     Active Substance: MOXIFLOXACIN HYDROCHLORIDE
     Indication: Anti-infective therapy

REACTIONS (3)
  - Delirium [Recovered/Resolved]
  - Incoherent [Recovered/Resolved]
  - Respiratory rate increased [Recovered/Resolved]

NARRATIVE: CASE EVENT DATE: 20240106
